FAERS Safety Report 13162799 (Version 2)
Quarter: 2017Q3

REPORT INFORMATION
  Report Type: Spontaneous
  Country: CA (occurrence: CA)
  Receive Date: 20170130
  Receipt Date: 20170815
  Transmission Date: 20171127
  Serious: Yes (Other)
  Sender: FDA-Public Use
  Company Number: CA-PFIZER INC-2017039805

PATIENT
  Age: 64 Year
  Sex: Female

DRUGS (5)
  1. XELJANZ [Suspect]
     Active Substance: TOFACITINIB CITRATE
     Indication: RHEUMATOID ARTHRITIS
     Dosage: 5 MG, 2X/DAY
     Route: 048
     Dates: start: 20151204, end: 20170110
  2. ADVIL (MEFENAMIC ACID) [Concomitant]
     Active Substance: MEFENAMIC ACID
     Indication: ARTHRALGIA
     Dosage: UNK
  3. METFORMIN [Concomitant]
     Active Substance: METFORMIN HYDROCHLORIDE
     Dosage: UNK
  4. WELLBUTRIN [Concomitant]
     Active Substance: BUPROPION HYDROCHLORIDE
     Dosage: UNK
  5. ELTROXIN [Concomitant]
     Active Substance: LEVOTHYROXINE
     Dosage: UNK

REACTIONS (4)
  - Oropharyngeal pain [Unknown]
  - Ear discomfort [Not Recovered/Not Resolved]
  - Tooth abscess [Not Recovered/Not Resolved]
  - Bronchitis [Unknown]

NARRATIVE: CASE EVENT DATE: 201701
